FAERS Safety Report 7128906-3 (Version None)
Quarter: 2010Q4

REPORT INFORMATION
  Report Type: 
  Country: None (occurrence: None)
  Receive Date: 20101130
  Receipt Date: 20101125
  Transmission Date: 20110411
  Serious: Yes (Hospitalization)
  Sender: FDA-Public Use
  Company Number: A0890082D

PATIENT
  Sex: Male
  Weight: 79.6 kg

DRUGS (3)
  1. OFATUMUMAB [Suspect]
     Route: 042
     Dates: start: 20100923
  2. CHLORAMBUCIL [Suspect]
     Route: 048
     Dates: start: 20100924
  3. PHENYTOIN [Concomitant]
     Dosage: 300MG PER DAY
     Route: 048
     Dates: start: 20101117, end: 20101124

REACTIONS (2)
  - DIZZINESS [None]
  - TREMOR [None]
